FAERS Safety Report 25423428 (Version 11)
Quarter: 2025Q4

REPORT INFORMATION
  Report Type: Report from Study
  Country: US (occurrence: US)
  Receive Date: 20250611
  Receipt Date: 20251206
  Transmission Date: 20260117
  Serious: Yes (Hospitalization, Other)
  Sender: AUROBINDO
  Company Number: US-AUROBINDO-AUR-APL-2025-028262

PATIENT
  Age: 79 Year
  Sex: Female
  Weight: 79.36 kg

DRUGS (147)
  1. PREDNISONE [Suspect]
     Active Substance: PREDNISONE
     Indication: Angioimmunoblastic T-cell lymphoma stage III
     Dosage: 100 MILLIGRAM (CYCLE 1 DAY 3)
     Route: 065
  2. PREDNISONE [Suspect]
     Active Substance: PREDNISONE
     Dosage: 100 MILLIGRAM (CYCLE 1 DAY 2)
     Route: 065
  3. PREDNISONE [Suspect]
     Active Substance: PREDNISONE
     Dosage: 100 MILLIGRAM (CYCLE 1 DAY 3)
     Route: 065
  4. PREDNISONE [Suspect]
     Active Substance: PREDNISONE
     Dosage: 100 MILLIGRAM (CYCLE 1 DAY 4)
     Route: 065
  5. PREDNISONE [Suspect]
     Active Substance: PREDNISONE
     Dosage: 100 MILLIGRAM (CYCLE 1 DAY 5)
     Route: 065
  6. PREDNISONE [Suspect]
     Active Substance: PREDNISONE
     Dosage: 100 MILLIGRAM (CYCLE 2 DAY 1)
     Route: 065
  7. PREDNISONE [Suspect]
     Active Substance: PREDNISONE
     Dosage: 100 MILLIGRAM (CYCLE 2 DAY 2)
     Route: 065
  8. PREDNISONE [Suspect]
     Active Substance: PREDNISONE
     Dosage: 50 MILLIGRAM, CYCLICAL
     Route: 065
  9. PREDNISONE [Suspect]
     Active Substance: PREDNISONE
     Dosage: 100 MILLIGRAM, CYCLICAL
     Route: 065
  10. CYCLOPHOSPHAMIDE [Suspect]
     Active Substance: CYCLOPHOSPHAMIDE
     Indication: Angioimmunoblastic T-cell lymphoma stage III
     Dosage: 750 MG/M2, CYCLE 1 DAY 1 OF  21 DAYS CYCLE
     Dates: start: 20250516, end: 20250516
  11. CYCLOPHOSPHAMIDE [Suspect]
     Active Substance: CYCLOPHOSPHAMIDE
     Dosage: 750 MG/M2, CYCLE
     Dates: start: 20250610, end: 20250610
  12. CYCLOPHOSPHAMIDE [Suspect]
     Active Substance: CYCLOPHOSPHAMIDE
     Dosage: 562.5 MG/M2, CYCLICAL
     Dates: start: 20250724, end: 20250724
  13. CYCLOPHOSPHAMIDE [Suspect]
     Active Substance: CYCLOPHOSPHAMIDE
     Dosage: 421.87 MG/M2, CYCLICAL
     Route: 065
     Dates: start: 20250911, end: 20250911
  14. BELINOSTAT [Suspect]
     Active Substance: BELINOSTAT
     Indication: Product used for unknown indication
     Dosage: UNK
     Route: 065
  15. DOXORUBICIN [Suspect]
     Active Substance: DOXORUBICIN
     Indication: Angioimmunoblastic T-cell lymphoma stage III
     Dosage: 25 MG/M2, CYCLICAL (CYCLE 1 DAY 1) OF 21 DAYS CYCLE
     Dates: start: 20250516, end: 20250516
  16. DOXORUBICIN [Suspect]
     Active Substance: DOXORUBICIN
     Dosage: 25 MG/M2, CYCLICAL (CYCLE 1 DAY 1) OF 21 DAYS CYCLE
     Dates: start: 20250610, end: 20250610
  17. DOXORUBICIN [Suspect]
     Active Substance: DOXORUBICIN
     Dosage: 37.5 MG/M2, CYCLICAL
     Dates: start: 20250724, end: 20250724
  18. DOXORUBICIN [Suspect]
     Active Substance: DOXORUBICIN
     Dosage: 50 MG/M2
     Route: 065
     Dates: start: 20250516, end: 20250516
  19. DOXORUBICIN [Suspect]
     Active Substance: DOXORUBICIN
     Dosage: 28.12 MG/M2
     Route: 065
     Dates: start: 20250911, end: 20250911
  20. VINCRISTINE [Suspect]
     Active Substance: VINCRISTINE
     Indication: Angioimmunoblastic T-cell lymphoma stage III
     Dosage: 1.4 MILLIGRAM/SQ. METER, CYCLICAL
  21. ONCOVIN [Suspect]
     Active Substance: VINCRISTINE SULFATE
     Indication: Angioimmunoblastic T-cell lymphoma stage III
     Dosage: 1.4 MG/M2, CYCLICAL (CYCLE 1 DAY 1)
     Dates: start: 20250516, end: 20250516
  22. ONCOVIN [Suspect]
     Active Substance: VINCRISTINE SULFATE
     Dosage: 1.4 MG/M2, CYCLICAL (CYCLE 1 DAY 1)
     Dates: start: 20250610, end: 20250610
  23. ONCOVIN [Suspect]
     Active Substance: VINCRISTINE SULFATE
     Dosage: 1.4 MG/M2, CYCLICAL (CYCLE 1 DAY 1)
     Dates: start: 20250724, end: 20250724
  24. ONCOVIN [Suspect]
     Active Substance: VINCRISTINE SULFATE
     Dosage: 1.5 MG/M2
     Route: 065
     Dates: start: 20250911, end: 20250911
  25. ACETAMINOPHEN\HYDROCODONE [Suspect]
     Active Substance: ACETAMINOPHEN\HYDROCODONE
     Indication: Spinal pain
     Dosage: 5325 MILLIGRAM, AS NECESSARY
     Dates: start: 20250507
  26. ACETAMINOPHEN\HYDROCODONE [Suspect]
     Active Substance: ACETAMINOPHEN\HYDROCODONE
     Dosage: 5325 MILLIGRAM, AS NECESSARY
     Dates: start: 20250608, end: 20250619
  27. DIPHENHYDRAMINE HYDROCHLORIDE\LIDOCAINE HYDROCHLORIDE\NYSTATIN [Suspect]
     Active Substance: DIPHENHYDRAMINE HYDROCHLORIDE\LIDOCAINE HYDROCHLORIDE\NYSTATIN
     Indication: Product used for unknown indication
     Dosage: 15 MILLILITER, FOUR TIMES/DAY
     Route: 065
     Dates: start: 20250513
  28. FOLIC ACID [Concomitant]
     Active Substance: FOLIC ACID
     Indication: Supplementation therapy
     Dosage: 1 MILLIGRAM, ONCE A DAY
     Dates: start: 20250508
  29. FOLIC ACID [Concomitant]
     Active Substance: FOLIC ACID
     Dosage: 1 MILLIGRAM, ONCE A DAY
     Dates: start: 20250827, end: 20250831
  30. AMLODIPINE [Concomitant]
     Active Substance: AMLODIPINE BESYLATE
     Indication: Hypertension
     Dosage: 10 MILLIGRAM, ONCE A DAY
     Dates: start: 20220922
  31. AMLODIPINE [Concomitant]
     Active Substance: AMLODIPINE BESYLATE
     Dosage: 5 MILLIGRAM, ONCE A DAY
     Dates: start: 20250618
  32. ESCITALOPRAM [Concomitant]
     Active Substance: ESCITALOPRAM OXALATE
     Indication: Anxiety
     Dosage: 10 MILLIGRAM, ONCE A DAY
     Dates: start: 2005
  33. MIRTAZAPINE [Concomitant]
     Active Substance: MIRTAZAPINE
     Indication: Insomnia
     Dosage: 30 MILLIGRAM, ONCE A DAY
     Dates: start: 20240501
  34. MIRTAZAPINE [Concomitant]
     Active Substance: MIRTAZAPINE
     Dosage: 45 MILLIGRAM, ONCE A DAY
     Dates: start: 20250524, end: 20250529
  35. MIRTAZAPINE [Concomitant]
     Active Substance: MIRTAZAPINE
     Dosage: 45 MILLIGRAM, ONCE A DAY
     Dates: start: 20250827, end: 20250830
  36. MIRTAZAPINE [Concomitant]
     Active Substance: MIRTAZAPINE
     Dosage: 45 MILLIGRAM, ONCE A DAY
     Dates: start: 20250917
  37. SIMVASTATIN [Concomitant]
     Active Substance: SIMVASTATIN
     Dosage: 80 MILLIGRAM, ONCE A DAY
     Dates: start: 20250506
  38. SODIUM CHLORIDE [Concomitant]
     Active Substance: SODIUM CHLORIDE
     Indication: Prophylaxis
     Dosage: 100 ML/HR
  39. ACETAMINOPHEN [Concomitant]
     Active Substance: ACETAMINOPHEN
     Indication: Spinal pain
     Dosage: 650 MILLIGRAM, AS NECESSARY
     Dates: start: 20250506
  40. ACETAMINOPHEN [Concomitant]
     Active Substance: ACETAMINOPHEN
     Dosage: 650 MILLIGRAM, AS NECESSARY
     Dates: start: 20250827
  41. ACETAMINOPHEN [Concomitant]
     Active Substance: ACETAMINOPHEN
     Dosage: 650 MILLIGRAM, AS NECESSARY
     Dates: start: 20250918
  42. ALLOPURINOL [Concomitant]
     Active Substance: ALLOPURINOL
     Indication: Hyperuricaemia
     Dosage: 100 MILLIGRAM, TWO TIMES A DAY
     Dates: start: 20250506
  43. FUROSEMIDE [Concomitant]
     Active Substance: FUROSEMIDE
     Indication: Pleural effusion
     Dosage: 40 MILLIGRAM, ONCE A DAY
     Dates: start: 20250506
  44. FUROSEMIDE [Concomitant]
     Active Substance: FUROSEMIDE
     Dosage: 20 MILLIGRAM, ONCE A DAY
     Dates: start: 20250618, end: 20250620
  45. PANTOPRAZOLE [Concomitant]
     Active Substance: PANTOPRAZOLE
     Indication: Gastrooesophageal reflux disease
     Dosage: 40 MILLIGRAM, ONCE A DAY
     Dates: start: 20250506
  46. PANTOPRAZOLE [Concomitant]
     Active Substance: PANTOPRAZOLE
     Dosage: 40 MILLIGRAM, ONCE A DAY
     Dates: start: 20250828, end: 20250831
  47. CLOBETASOL [Concomitant]
     Active Substance: CLOBETASOL
     Indication: Petechiae
     Dosage: 0.05 %, TWO TIMES A DAY
     Dates: start: 20250506
  48. ONDANSETRON [Concomitant]
     Active Substance: ONDANSETRON
     Indication: Prophylaxis of nausea and vomiting
     Dosage: 4 MILLIGRAM, AS NECESSARY
     Dates: start: 20250506
  49. ONDANSETRON [Concomitant]
     Active Substance: ONDANSETRON
     Dosage: 4 MILLIGRAM, AS NECESSARY
     Dates: start: 20250831, end: 20250831
  50. METHYLPREDNISOLONE SODIUM SUCCINATE [Concomitant]
     Active Substance: METHYLPREDNISOLONE SODIUM SUCCINATE
     Indication: Lymphadenopathy
     Dosage: 250 MILLIGRAM, FOUR TIMES/DAY
     Dates: start: 20250508, end: 20250514
  51. METHYLPREDNISOLONE SODIUM SUCCINATE [Concomitant]
     Active Substance: METHYLPREDNISOLONE SODIUM SUCCINATE
     Dosage: 60 MILLIGRAM, FOUR TIMES/DAY
     Dates: start: 20250510, end: 20250510
  52. MAGNESIUM SULFATE [Concomitant]
     Active Substance: MAGNESIUM SULFATE
     Indication: Hypomagnesaemia
     Dosage: 2 GRAM, AS NECESSARY
     Dates: start: 20250508
  53. MAGNESIUM SULFATE [Concomitant]
     Active Substance: MAGNESIUM SULFATE
     Dosage: 2 GRAM, AS NECESSARY
     Dates: start: 20250606, end: 20250623
  54. MAGNESIUM SULFATE [Concomitant]
     Active Substance: MAGNESIUM SULFATE
     Dosage: 2 GRAM, AS NECESSARY
     Dates: start: 20250828, end: 20250831
  55. MAGNESIUM SULFATE [Concomitant]
     Active Substance: MAGNESIUM SULFATE
     Dosage: 2 GRAM, AS NECESSARY
     Dates: start: 20250911, end: 20250911
  56. MAGNESIUM SULFATE [Concomitant]
     Active Substance: MAGNESIUM SULFATE
     Dosage: 2 GRAM, AS NECESSARY
     Dates: start: 20250917
  57. MICONAZOLE [Concomitant]
     Active Substance: MICONAZOLE
     Indication: Petechiae
     Dosage: 2 %, TWO TIMES A DAY (Q12H)
     Dates: start: 20250509
  58. INSULIN GLARGINE [Concomitant]
     Active Substance: INSULIN GLARGINE
     Indication: Hyperglycaemia
     Dosage: 14 INTERNATIONAL UNIT, ONCE A DAY
     Dates: start: 20250510
  59. MUPIROCIN [Concomitant]
     Active Substance: MUPIROCIN
     Indication: Infection prophylaxis
     Dosage: 0.5 GRAM, TWO TIMES A DAY
     Dates: start: 20250510
  60. immune globulin [Concomitant]
     Indication: Thrombocytopenia
     Dosage: 30 GRAM, ONCE A DAY
     Dates: start: 20250511, end: 20250514
  61. DIPHENHYDRAMINE [Concomitant]
     Active Substance: DIPHENHYDRAMINE
     Indication: Premedication
     Dosage: 25 MILLIGRAM, AS NECESSARY
     Dates: start: 20250512
  62. DIPHENHYDRAMINE [Concomitant]
     Active Substance: DIPHENHYDRAMINE
     Dosage: 25 MILLIGRAM, AS NECESSARY
     Dates: start: 20250615
  63. DIPHENHYDRAMINE [Concomitant]
     Active Substance: DIPHENHYDRAMINE
     Dosage: 12.5 MILLIGRAM, AS NECESSARY
     Dates: start: 20250617, end: 20250617
  64. DIPHENHYDRAMINE [Concomitant]
     Active Substance: DIPHENHYDRAMINE
     Dosage: 12.5 MILLIGRAM, AS NECESSARY
     Dates: start: 20250523, end: 20250523
  65. DIPHENHYDRAMINE [Concomitant]
     Active Substance: DIPHENHYDRAMINE
     Dosage: 25 MILLIGRAM, DAILY
  66. DIPHENHYDRAMINE [Concomitant]
     Active Substance: DIPHENHYDRAMINE
     Dosage: 25 MILLIGRAM, DAILY
  67. OLANZAPINE [Concomitant]
     Active Substance: OLANZAPINE
     Indication: Insomnia
     Dosage: 2.5 MILLIGRAM, ONCE A DAY
     Dates: start: 20250512, end: 20250513
  68. diphenhydramine-nystatinlidocaine [Concomitant]
     Indication: Stomatitis
     Dosage: 15 MILLILITER, FOUR TIMES/DAY
     Dates: start: 20250513
  69. diphenhydramine-nystatinlidocaine [Concomitant]
     Dosage: 10 MILLILITER, FOUR TIMES/DAY
     Dates: start: 20250917
  70. POTASSIUM CHLORIDE [Concomitant]
     Active Substance: POTASSIUM CHLORIDE
     Indication: Hypokalaemia
     Dosage: 40 MEQ/MG, AS NECESSARY
     Dates: start: 20250513
  71. POTASSIUM CHLORIDE [Concomitant]
     Active Substance: POTASSIUM CHLORIDE
     Dosage: 40 MEQ/MG, AS NECESSARY
     Dates: start: 20250606
  72. POTASSIUM CHLORIDE [Concomitant]
     Active Substance: POTASSIUM CHLORIDE
     Dosage: 40 MEQ/MG, AS NECESSARY
     Dates: start: 20250827, end: 20250831
  73. LORAZEPAM [Concomitant]
     Active Substance: LORAZEPAM
     Indication: Anxiety
     Dosage: 1 MILLIGRAM, AS NECESSARY
     Dates: start: 20250513
  74. HYDRALAZINE [Concomitant]
     Active Substance: HYDRALAZINE HYDROCHLORIDE
     Indication: Hypertension
     Dosage: 5 MILLIGRAM, AS NECESSARY
     Dates: start: 20250515
  75. HYDRALAZINE [Concomitant]
     Active Substance: HYDRALAZINE HYDROCHLORIDE
     Dosage: 5 MILLIGRAM, AS NECESSARY
     Dates: start: 20250613, end: 20250614
  76. HYDRALAZINE [Concomitant]
     Active Substance: HYDRALAZINE HYDROCHLORIDE
     Dosage: 5 MILLIGRAM, AS NECESSARY
     Dates: start: 20250523, end: 20250523
  77. ACYCLOVIR [Concomitant]
     Active Substance: ACYCLOVIR
     Indication: Febrile neutropenia
     Dosage: 200 MILLIGRAM, TWO TIMES A DAY
     Dates: start: 20250522, end: 20250523
  78. ACYCLOVIR [Concomitant]
     Active Substance: ACYCLOVIR
     Dosage: 200 MILLIGRAM, TWO TIMES A DAY
     Dates: start: 20250523, end: 20250523
  79. ACYCLOVIR [Concomitant]
     Active Substance: ACYCLOVIR
     Dosage: 200 MILLIGRAM, TWO TIMES A DAY
     Dates: start: 20250523, end: 20250525
  80. FILGRASTIM-SNDZ [Concomitant]
     Active Substance: FILGRASTIM-SNDZ
     Indication: Febrile neutropenia
     Dosage: 600 MICROGRAM, ONCE A DAY
     Dates: start: 20250523, end: 20250526
  81. FILGRASTIM-SNDZ [Concomitant]
     Active Substance: FILGRASTIM-SNDZ
     Dosage: 600 MICROGRAM, ONCE A DAY
     Dates: start: 20250523, end: 20250527
  82. FILGRASTIM-SNDZ [Concomitant]
     Active Substance: FILGRASTIM-SNDZ
     Dosage: 480 MICROGRAM, ONCE A DAY
     Dates: start: 20250611, end: 20250611
  83. PERMETHRIN [Concomitant]
     Active Substance: PERMETHRIN
     Indication: Lice infestation
     Dosage: 1 %, EVERY WEEK
     Dates: start: 20250520
  84. QUETIAPINE [Concomitant]
     Active Substance: QUETIAPINE
     Indication: Insomnia
     Dosage: 25 MILLIGRAM, ONCE A DAY
     Dates: start: 20250521, end: 20250522
  85. LOPERAMIDE [Concomitant]
     Active Substance: LOPERAMIDE
     Indication: Diarrhoea
     Dosage: 2 MILLIGRAM
  86. LOPERAMIDE [Concomitant]
     Active Substance: LOPERAMIDE
     Dosage: 2 MILLIGRAM
     Dates: start: 20250518, end: 20250523
  87. LOPERAMIDE [Concomitant]
     Active Substance: LOPERAMIDE
     Dosage: 2 MILLIGRAM
     Dates: start: 20250617, end: 20250621
  88. LOPERAMIDE [Concomitant]
     Active Substance: LOPERAMIDE
     Dosage: 2 MILLIGRAM, FOUR TIMES/DAY
     Dates: start: 20250622
  89. LEVOFLOXACIN [Concomitant]
     Active Substance: LEVOFLOXACIN
     Indication: Antibiotic prophylaxis
     Dosage: 500 MILLIGRAM
     Dates: start: 20250522, end: 20250522
  90. FLUCONAZOLE [Concomitant]
     Active Substance: FLUCONAZOLE
     Indication: Antibiotic prophylaxis
     Dosage: 400 MILLIGRAM, DAILY
     Dates: start: 20250522, end: 20250523
  91. FLUCONAZOLE [Concomitant]
     Active Substance: FLUCONAZOLE
     Dosage: 400 MILLIGRAM, DAILY
     Dates: start: 20250524, end: 20250525
  92. FLUCONAZOLE [Concomitant]
     Active Substance: FLUCONAZOLE
     Dosage: 400 MILLIGRAM, DAILY
  93. LISINOPRIL [Concomitant]
     Active Substance: LISINOPRIL
     Indication: Product used for unknown indication
     Dosage: 5 MILLIGRAM, DAILY
     Dates: start: 20250606, end: 20250607
  94. LISINOPRIL [Concomitant]
     Active Substance: LISINOPRIL
     Dosage: 5 MILLIGRAM, DAILY
     Dates: start: 20250521, end: 20250530
  95. LISINOPRIL [Concomitant]
     Active Substance: LISINOPRIL
     Dosage: 10 MILLIGRAM, DAILY
     Dates: start: 20250608, end: 20250614
  96. LISINOPRIL [Concomitant]
     Active Substance: LISINOPRIL
     Dosage: 20 MILLIGRAM, ONCE A DAY
     Dates: start: 20250615, end: 20250617
  97. LISINOPRIL [Concomitant]
     Active Substance: LISINOPRIL
     Dosage: 5 MILLIGRAM, ONCE A DAY
     Dates: start: 20250917
  98. MORPHINE [Concomitant]
     Active Substance: MORPHINE
     Indication: Product used for unknown indication
     Dosage: 2 MILLIGRAM, AS NECESSARY
     Dates: start: 20250521, end: 20250525
  99. MORPHINE [Concomitant]
     Active Substance: MORPHINE
     Dosage: 2 MILLIGRAM, FOUR TIMES/DAY
     Dates: start: 20250828, end: 20250831
  100. CHLORHEXIDINE [Concomitant]
     Active Substance: CHLORHEXIDINE
     Indication: Infection prophylaxis
     Dosage: 15 MILLILITER, TWO TIMES A DAY
     Dates: start: 20250525, end: 20250530
  101. CHLORHEXIDINE [Concomitant]
     Active Substance: CHLORHEXIDINE
     Indication: Stomatitis
     Dosage: 15 MILLILITER, TWO TIMES A DAY
     Dates: start: 20250917
  102. POTASSIUM CHLORIDE [Concomitant]
     Active Substance: POTASSIUM CHLORIDE
     Indication: Hypokalaemia
     Dosage: UNK UNK, AS NECESSARY (10 MEQ)
     Dates: start: 20250619, end: 20250621
  103. POTASSIUM CHLORIDE [Concomitant]
     Active Substance: POTASSIUM CHLORIDE
     Dosage: UNK UNK, AS NECESSARY (20 MEQ)
     Dates: start: 20250607, end: 20250617
  104. POTASSIUM CHLORIDE [Concomitant]
     Active Substance: POTASSIUM CHLORIDE
     Dosage: UNK UNK, DAILY
     Dates: start: 20250911, end: 20250911
  105. POTASSIUM CHLORIDE [Concomitant]
     Active Substance: POTASSIUM CHLORIDE
     Dosage: 20 MEQ/MG, DAILY
  106. DICYCLOMINE [Concomitant]
     Active Substance: DICYCLOMINE HYDROCHLORIDE
     Indication: Hypokalaemia
     Dosage: 20 MILLIGRAM, FOUR TIMES/DAY
     Dates: start: 20250607, end: 20250625
  107. GUAIFENESIN [Concomitant]
     Active Substance: GUAIFENESIN
     Indication: Product used for unknown indication
     Dosage: 600 MILLIGRAM, TWO TIMES A DAY
     Dates: start: 20250607
  108. ATROPINE\DIPHENOXYLATE [Concomitant]
     Active Substance: ATROPINE\DIPHENOXYLATE
     Indication: Product used for unknown indication
     Dosage: 1 DOSAGE FORM, FOUR TIMES/DAY
     Dates: start: 20250606, end: 20250609
  109. trimethoprim-polymyxin b [Concomitant]
     Indication: Product used for unknown indication
     Dosage: 2 DROP, FOUR TIMES/DAY
     Dates: start: 20250608, end: 20250615
  110. BUMETANIDE [Concomitant]
     Active Substance: BUMETANIDE
     Indication: Product used for unknown indication
     Dosage: 2 MILLIGRAM, ONCE A DAY
     Dates: start: 20250609, end: 20250609
  111. RAMELTEON [Concomitant]
     Active Substance: RAMELTEON
     Indication: Insomnia
     Dosage: 8 MILLIGRAM, DAILY
  112. PHOSPHORUS [Concomitant]
     Active Substance: PHOSPHORUS
     Indication: Product used for unknown indication
     Dosage: UNK, AS NECESSARY ( 2 OTHER)
     Dates: start: 20250622
  113. PHOSPHORUS [Concomitant]
     Active Substance: PHOSPHORUS
     Dosage: 2 GRAM, AS NECESSARY
     Dates: start: 20250917
  114. APREPITANT [Concomitant]
     Active Substance: APREPITANT
     Indication: Prophylaxis of nausea and vomiting
     Dosage: 130 MILLIGRAM, ONCE A DAY
     Dates: start: 20250610, end: 20250610
  115. PALONOSETRON [Concomitant]
     Active Substance: PALONOSETRON
     Indication: Prophylaxis of nausea and vomiting
     Dosage: 0.25 MILLIGRAM (IV VIAL)
     Dates: start: 20250610, end: 20250610
  116. PHYTONADIONE [Concomitant]
     Active Substance: PHYTONADIONE
     Indication: Product used for unknown indication
     Dosage: 10 MILLIGRAM, ONCE A DAY
     Dates: start: 20250615, end: 20250615
  117. OCTREOTIDE [Concomitant]
     Active Substance: OCTREOTIDE
     Indication: Product used for unknown indication
     Dosage: 100 MICROGRAM, 3 TIMES A DAY
     Dates: start: 20250616, end: 20250617
  118. OCTREOTIDE [Concomitant]
     Active Substance: OCTREOTIDE
     Dosage: 300 MICROGRAM, ONCE A DAY
     Dates: start: 20250617, end: 20250625
  119. balsam peru/castor oil [Concomitant]
     Indication: Product used for unknown indication
     Dosage: UNK, TWO TIMES A DAY ( 1 APPLICATION)
     Dates: start: 20250619
  120. CALCIUM GLUCONATE [Concomitant]
     Active Substance: CALCIUM GLUCONATE
     Indication: Product used for unknown indication
     Dosage: 2 GRAM, ONCE A DAY
     Dates: start: 20250619, end: 20250619
  121. DOCUSATE SODIUM [Concomitant]
     Active Substance: DOCUSATE SODIUM
     Indication: Product used for unknown indication
     Dosage: 100 MILLIGRAM, TWO TIMES A DAY
     Dates: start: 20250626, end: 20250626
  122. DOCUSATE SODIUM [Concomitant]
     Active Substance: DOCUSATE SODIUM
     Dosage: 100 MILLIGRAM, TWO TIMES A DAY
     Dates: start: 20250827, end: 20250827
  123. GADOTERATE MEGLUMINE [Concomitant]
     Active Substance: GADOTERATE MEGLUMINE
     Indication: Product used for unknown indication
     Dosage: 15.3 MILLIGRAM, DAILY
     Dates: start: 20250918, end: 20250918
  124. ENOXAPARIN [Concomitant]
     Active Substance: ENOXAPARIN
     Indication: Thrombosis prophylaxis
     Dosage: 40 MILLIGRAM, ONCE A DAY
     Dates: start: 20250626, end: 20250627
  125. LANTUS [Concomitant]
     Active Substance: INSULIN GLARGINE
     Indication: Product used for unknown indication
     Dosage: 20 INTERNATIONAL UNIT, ONCE A DAY
     Dates: start: 20250814, end: 20250820
  126. FLUCONAZOLE [Concomitant]
     Active Substance: FLUCONAZOLE
     Indication: Antibiotic prophylaxis
     Dosage: 400 MILLIGRAM, ONCE A DAY
     Dates: start: 20250524, end: 20250525
  127. ALTEPLASE [Concomitant]
     Active Substance: ALTEPLASE
     Indication: Product used for unknown indication
     Dosage: 1 MILLIGRAM, ONCE A DAY
     Dates: start: 20250527, end: 20250527
  128. ALTEPLASE [Concomitant]
     Active Substance: ALTEPLASE
     Dosage: 1 MILLIGRAM, ONCE A DAY
     Dates: start: 20250830, end: 20250830
  129. COLESTIPOL [Concomitant]
     Active Substance: COLESTIPOL
     Indication: Product used for unknown indication
     Dosage: 2 GRAM, TWO TIMES A DAY
     Dates: start: 20250618
  130. HEPARIN [Concomitant]
     Active Substance: HEPARIN SODIUM
     Indication: Product used for unknown indication
     Dosage: UNK
     Dates: start: 20250812, end: 20250813
  131. ATORVASTATIN [Concomitant]
     Active Substance: ATORVASTATIN
     Indication: Hyperlipidaemia
     Dosage: 40 MILLIGRAM, DAILY
  132. OXYCODONE [Concomitant]
     Active Substance: OXYCODONE
     Indication: Product used for unknown indication
     Dosage: 5-325 MILLIGRAMS, AS NEEDED
     Route: 065
  133. LACTOBACILLUS ACIDOPHILUS [Concomitant]
     Active Substance: LACTOBACILLUS ACIDOPHILUS
     Indication: Product used for unknown indication
     Dosage: UNK
     Route: 065
  134. HYOSCYAMINE [Concomitant]
     Active Substance: HYOSCYAMINE
     Indication: Product used for unknown indication
     Dosage: UNK
     Route: 065
  135. ESOMEPRAZOLE [Concomitant]
     Active Substance: ESOMEPRAZOLE
     Indication: Product used for unknown indication
     Dosage: UNK
     Route: 065
  136. VALACYCLOVIR [Concomitant]
     Active Substance: VALACYCLOVIR HYDROCHLORIDE
     Indication: Product used for unknown indication
     Dosage: UNK
     Route: 065
     Dates: start: 20250830, end: 20250831
  137. VALACYCLOVIR [Concomitant]
     Active Substance: VALACYCLOVIR HYDROCHLORIDE
     Dosage: 500 MILLIGRAM, TWO TIMES A DAY
     Dates: start: 20250828, end: 20250828
  138. VALACYCLOVIR [Concomitant]
     Active Substance: VALACYCLOVIR HYDROCHLORIDE
     Dosage: 1000 MILLIGRAM, TWO TIMES A DAY
     Dates: start: 20250830, end: 20250831
  139. VALACYCLOVIR [Concomitant]
     Active Substance: VALACYCLOVIR HYDROCHLORIDE
     Dosage: 1000 MILLIGRAM, TWO TIMES A DAY
     Dates: start: 20250831
  140. HYDROMORPHONE [Concomitant]
     Active Substance: HYDROMORPHONE
     Indication: Product used for unknown indication
     Dosage: UNK
     Route: 065
     Dates: start: 20250829, end: 20250831
  141. VENELEX [Concomitant]
     Active Substance: BALSAM PERU\CASTOR OIL
     Indication: Product used for unknown indication
     Dosage: UNK
     Route: 065
  142. DIAZEPAM [Concomitant]
     Active Substance: DIAZEPAM
     Indication: Product used for unknown indication
     Dosage: 5 MILLIGRAM, DAILY
     Dates: start: 20250917, end: 20250917
  143. LUMASON [Concomitant]
     Active Substance: SULFUR HEXAFLUORIDE
     Indication: Product used for unknown indication
     Dosage: 3 MILLILITER, AS NECESSARY
     Dates: start: 20250811
  144. sodium chloride 0.9% Bolus [Concomitant]
     Indication: Product used for unknown indication
     Dosage: 500 MILLILITER, DAILY
     Route: 065
     Dates: start: 20250925, end: 20250925
  145. PLATELETS [Concomitant]
     Active Substance: HUMAN PLATELET, ALLOGENIC
     Indication: Product used for unknown indication
     Dosage: UNK
     Route: 065
     Dates: start: 20250513, end: 20250513
  146. HUMAN RED BLOOD CELL [Concomitant]
     Active Substance: HUMAN RED BLOOD CELL
     Indication: Product used for unknown indication
     Dosage: UNK
     Dates: start: 20250918, end: 20250918
  147. PRALATREXATE [Suspect]
     Active Substance: PRALATREXATE
     Indication: Product used for unknown indication
     Dosage: UNK
     Route: 065

REACTIONS (51)
  - Febrile neutropenia [Recovered/Resolved]
  - Seizure [Recovered/Resolved]
  - Abdominal pain [Not Recovered/Not Resolved]
  - Syncope [Recovered/Resolved]
  - Embolism venous [Recovered/Resolved]
  - Diarrhoea [Recovered/Resolved]
  - Asthenia [Recovered/Resolved]
  - Hypokalaemia [Recovered/Resolved]
  - Thrombocytopenia [Recovered/Resolved]
  - Dehydration [Recovered/Resolved]
  - Anaemia [Not Recovered/Not Resolved]
  - Rectal haemorrhage [Recovered/Resolved]
  - Failure to thrive [Recovered/Resolved]
  - Cystitis [Not Recovered/Not Resolved]
  - Cerebrovascular accident [Recovered/Resolved]
  - Rectal ulcer [Not Recovered/Not Resolved]
  - Acute kidney injury [Not Recovered/Not Resolved]
  - Clostridium difficile colitis [Not Recovered/Not Resolved]
  - Fatigue [Recovered/Resolved]
  - Hyperglycaemia [Recovered/Resolved]
  - Stomatitis [Not Recovered/Not Resolved]
  - Hypocalcaemia [Not Recovered/Not Resolved]
  - Lice infestation [Recovered/Resolved]
  - Conjunctivitis [Not Recovered/Not Resolved]
  - Oedema peripheral [Not Recovered/Not Resolved]
  - Cough [Not Recovered/Not Resolved]
  - Hypophosphataemia [Recovered/Resolved]
  - Decreased appetite [Not Recovered/Not Resolved]
  - Nausea [Recovered/Resolved]
  - Haematuria [Recovered/Resolved]
  - Hypertension [Not Recovered/Not Resolved]
  - Decubitus ulcer [Not Recovered/Not Resolved]
  - Hypercholesterolaemia [Not Recovered/Not Resolved]
  - Fall [Recovered/Resolved]
  - Skin abrasion [Recovering/Resolving]
  - Osteoarthritis [Not Recovered/Not Resolved]
  - Skin laceration [Not Recovered/Not Resolved]
  - Thrombosis [Recovered/Resolved]
  - Hypotension [Not Recovered/Not Resolved]
  - Weight decreased [Not Recovered/Not Resolved]
  - Sinus tachycardia [Not Recovered/Not Resolved]
  - Oedema [Not Recovered/Not Resolved]
  - Dyspnoea [Not Recovered/Not Resolved]
  - Wheezing [Recovered/Resolved]
  - Blood creatine increased [Recovered/Resolved]
  - Blood alkaline phosphatase increased [Not Recovered/Not Resolved]
  - Urinary tract infection [Not Recovered/Not Resolved]
  - Urinary incontinence [Not Recovered/Not Resolved]
  - Vomiting [Recovered/Resolved]
  - Gastrooesophageal reflux disease [Recovered/Resolved]
  - Confusional state [Recovered/Resolved]

NARRATIVE: CASE EVENT DATE: 20250508
